FAERS Safety Report 23474921 (Version 1)
Quarter: 2024Q1

REPORT INFORMATION
  Report Type: Report from Study
  Country: US (occurrence: US)
  Receive Date: 20240204
  Receipt Date: 20240204
  Transmission Date: 20240410
  Serious: Yes (Other)
  Sender: FDA-Public Use
  Company Number: US-EXELIXIS-CABO-23068301

PATIENT
  Sex: Female

DRUGS (2)
  1. CABOMETYX [Suspect]
     Active Substance: CABOZANTINIB S-MALATE
     Indication: Malignant neoplasm of thorax
     Dosage: 60 MG, QD
     Route: 048
     Dates: start: 202305, end: 202305
  2. CABOMETYX [Suspect]
     Active Substance: CABOZANTINIB S-MALATE
     Indication: Metastases to lymph nodes
     Dosage: 40 MG, QD
     Route: 048
     Dates: start: 202305

REACTIONS (3)
  - Malignant neoplasm progression [Unknown]
  - Skin disorder [Unknown]
  - Off label use [Unknown]
